FAERS Safety Report 10137083 (Version 1)
Quarter: 2014Q2

REPORT INFORMATION
  Report Type: Spontaneous
  Country: US (occurrence: US)
  Receive Date: 20140429
  Receipt Date: 20140429
  Transmission Date: 20141212
  Serious: No
  Sender: FDA-Public Use
  Company Number: US-ABBVIE-14P-163-1209331-00

PATIENT
  Age: 63 Year
  Sex: Male
  Weight: 107.6 kg

DRUGS (8)
  1. ANDROGEL [Suspect]
     Indication: BLOOD TESTOSTERONE DECREASED
     Dosage: 2 PUMPS
     Route: 061
     Dates: start: 201111
  2. ANDROGEL [Suspect]
     Dosage: 4 PUMPS
     Route: 061
     Dates: end: 201402
  3. ANDROGEL [Suspect]
     Dosage: 2 PUMPS
     Route: 061
     Dates: start: 201402, end: 20140223
  4. SYNTHROID [Concomitant]
     Indication: HYPOTHYROIDISM
  5. CARTIA XT [Concomitant]
     Indication: HYPERTENSION
  6. LISINOPRIL [Concomitant]
     Indication: HYPERTENSION
  7. SIMVASTATIN [Concomitant]
     Indication: BLOOD CHOLESTEROL INCREASED
  8. NEFAZODONE [Concomitant]
     Indication: DEPRESSION

REACTIONS (3)
  - Application site pain [Recovered/Resolved]
  - Peripheral swelling [Recovered/Resolved]
  - Myalgia [Recovered/Resolved]
